FAERS Safety Report 21591960 (Version 1)
Quarter: 2022Q4

REPORT INFORMATION
  Report Type: Spontaneous
  Country: DE (occurrence: None)
  Receive Date: 20221114
  Receipt Date: 20221114
  Transmission Date: 20230112
  Serious: Yes (Life-Threatening, Other)
  Sender: FDA-Public Use
  Company Number: 2022A373595

PATIENT
  Age: 64 Year
  Sex: Female

DRUGS (1)
  1. DAPAGLIFLOZIN [Suspect]
     Active Substance: DAPAGLIFLOZIN
     Indication: Type 2 diabetes mellitus
     Route: 048
     Dates: start: 2021

REACTIONS (10)
  - Chronic kidney disease [Unknown]
  - Hypertensive nephropathy [Unknown]
  - Diabetic nephropathy [Unknown]
  - Nephrogenic anaemia [Unknown]
  - Aortic valve incompetence [Unknown]
  - Hypertension [Unknown]
  - Diastolic dysfunction [Unknown]
  - Pleural fibrosis [Unknown]
  - Dermatitis [Unknown]
  - Depression suicidal [Unknown]

NARRATIVE: CASE EVENT DATE: 20220101
